FAERS Safety Report 11132182 (Version 2)
Quarter: 2016Q1

REPORT INFORMATION
  Report Type: Report from Study
  Country: US (occurrence: US)
  Receive Date: 20150522
  Receipt Date: 20160325
  Transmission Date: 20160525
  Serious: Yes (Other)
  Sender: FDA-Public Use
  Company Number: US-MALLINCKRODT-T201502298

PATIENT
  Age: 60 Year
  Sex: Female
  Weight: 109 kg

DRUGS (9)
  1. REPOSITORY CORTICOTROPIN INJECTION [Suspect]
     Active Substance: CORTICOTROPIN
     Indication: DERMATOMYOSITIS
     Dosage: 80 UNITS TWICE WKLY FOR 12 WEEKS
     Route: 058
     Dates: start: 20150325, end: 201506
  2. CELLCEPT [Concomitant]
     Active Substance: MYCOPHENOLATE MOFETIL\MYCOPHENOLATE MOFETIL HYDROCHLORIDE
  3. REPOSITORY CORTICOTROPIN INJECTION [Suspect]
     Active Substance: CORTICOTROPIN
     Dosage: 80 UNITS/TWICE PER WEEK
     Route: 058
     Dates: start: 20151126, end: 20160224
  4. METOPROLOL. [Concomitant]
     Active Substance: METOPROLOL
     Indication: DRUG THERAPY
  5. PREDNISONE. [Suspect]
     Active Substance: PREDNISONE
     Indication: PRODUCT USED FOR UNKNOWN INDICATION
     Dosage: UNK
     Route: 065
     Dates: end: 20151031
  6. PLAQUENIL [Concomitant]
     Active Substance: HYDROXYCHLOROQUINE SULFATE
  7. XARELTO [Concomitant]
     Active Substance: RIVAROXABAN
     Indication: ANTICOAGULANT THERAPY
  8. LOSARTAN. [Concomitant]
     Active Substance: LOSARTAN
     Indication: DRUG THERAPY
  9. REPOSITORY CORTICOTROPIN INJECTION [Suspect]
     Active Substance: CORTICOTROPIN
     Dosage: 80 UNITS TWICE WKLY
     Route: 030
     Dates: start: 201507, end: 20151031

REACTIONS (27)
  - Memory impairment [Not Recovered/Not Resolved]
  - Acne [Recovered/Resolved]
  - Dizziness [Not Recovered/Not Resolved]
  - Eye haemorrhage [Unknown]
  - Transient ischaemic attack [Recovered/Resolved]
  - Glycosylated haemoglobin increased [Recovered/Resolved]
  - Asthenia [Unknown]
  - Arthropathy [Unknown]
  - Gait disturbance [Not Recovered/Not Resolved]
  - Cushingoid [Not Recovered/Not Resolved]
  - Blood glucose increased [Recovered/Resolved]
  - Fall [Recovered/Resolved]
  - Accidental underdose [Recovered/Resolved]
  - Musculoskeletal stiffness [Unknown]
  - Vision blurred [Not Recovered/Not Resolved]
  - Intraocular pressure increased [Unknown]
  - Dyspnoea [Unknown]
  - Feeling abnormal [Not Recovered/Not Resolved]
  - Blood pressure increased [Unknown]
  - Face injury [Recovered/Resolved]
  - Vaginal haemorrhage [Unknown]
  - Rash pruritic [Recovering/Resolving]
  - Dermatomyositis [Recovered/Resolved]
  - Pruritus [Not Recovered/Not Resolved]
  - Peripheral swelling [Unknown]
  - Incorrect product storage [Recovered/Resolved]
  - Therapy cessation [Recovered/Resolved]

NARRATIVE: CASE EVENT DATE: 2015
